FAERS Safety Report 10617322 (Version 1)
Quarter: 2014Q4

REPORT INFORMATION
  Report Type: Spontaneous
  Country: US (occurrence: US)
  Receive Date: 20141201
  Receipt Date: 20141201
  Transmission Date: 20150529
  Serious: Yes (Other)
  Sender: FDA-Public Use
  Company Number: PHEH2014US023084

PATIENT
  Age: 43 Year
  Sex: Female

DRUGS (3)
  1. CYCLOSPORINE. [Concomitant]
     Active Substance: CYCLOSPORINE
     Indication: PRODUCT USED FOR UNKNOWN INDICATION
     Dosage: UNK
     Route: 065
  2. BENADRYL [Concomitant]
     Active Substance: DIPHENHYDRAMINE HYDROCHLORIDE
     Indication: PRODUCT USED FOR UNKNOWN INDICATION
     Dosage: UNK
     Route: 065
  3. EXJADE [Suspect]
     Active Substance: DEFERASIROX
     Indication: IRON OVERLOAD
     Dosage: UNK
     Route: 065
     Dates: start: 2008, end: 2008

REACTIONS (18)
  - Chromaturia [Unknown]
  - Migraine [Unknown]
  - Drug ineffective [Unknown]
  - Haemoglobin decreased [Not Recovered/Not Resolved]
  - Discomfort [Unknown]
  - Fatigue [Not Recovered/Not Resolved]
  - Blood lactate dehydrogenase increased [Unknown]
  - Haemolysis [Unknown]
  - Renal disorder [Unknown]
  - Cough [Unknown]
  - Dysphagia [Recovering/Resolving]
  - Diarrhoea [Unknown]
  - Glomerular filtration rate decreased [Unknown]
  - Blood creatinine increased [Unknown]
  - Oesophageal spasm [Unknown]
  - Abdominal pain [Recovering/Resolving]
  - Gastrointestinal disorder [Unknown]
  - Muscle spasms [Unknown]

NARRATIVE: CASE EVENT DATE: 20080326
